FAERS Safety Report 9895186 (Version 1)
Quarter: 2014Q1

REPORT INFORMATION
  Report Type: Spontaneous
  Country: US (occurrence: US)
  Receive Date: 20140213
  Receipt Date: 20140213
  Transmission Date: 20141002
  Serious: No
  Sender: FDA-Public Use
  Company Number: US-BRISTOL-MYERS SQUIBB COMPANY-19229434

PATIENT
  Sex: Female

DRUGS (4)
  1. ORENCIA [Suspect]
     Route: 042
     Dates: end: 20130827
  2. METHOTREXATE [Concomitant]
  3. FOLIC ACID [Concomitant]
  4. LYSINE [Concomitant]

REACTIONS (2)
  - Upper respiratory tract infection [Unknown]
  - Oropharyngeal pain [Unknown]
